FAERS Safety Report 7274993-1 (Version None)
Quarter: 2011Q1

REPORT INFORMATION
  Report Type: 
  Country: None (occurrence: None)
  Receive Date: 20110204
  Receipt Date: 20110126
  Transmission Date: 20110831
  Serious: Yes (Death)
  Sender: FDA-Public Use
  Company Number: JP-ROCHE-752055

PATIENT
  Sex: Male
  Weight: 69 kg

DRUGS (6)
  1. PARAPLATIN [Concomitant]
     Route: 041
     Dates: start: 20100218, end: 20100218
  2. TAXOL [Concomitant]
     Route: 041
     Dates: start: 20100304, end: 20100304
  3. RIKKUNSHI-TO [Concomitant]
     Dosage: FORM: PER ORAL AGENT
     Route: 048
     Dates: start: 20090708, end: 20100310
  4. AVASTIN [Suspect]
     Indication: NON-SMALL CELL LUNG CANCER RECURRENT
     Route: 041
     Dates: start: 20100218, end: 20100218
  5. TAXOL [Concomitant]
     Route: 041
     Dates: start: 20100218, end: 20100218
  6. AVASTIN [Suspect]
     Route: 041
     Dates: start: 20100304, end: 20100304

REACTIONS (4)
  - CEREBRAL HAEMORRHAGE [None]
  - INTRACRANIAL ANEURYSM [None]
  - INTRAVENTRICULAR HAEMORRHAGE [None]
  - SUBARACHNOID HAEMORRHAGE [None]
